FAERS Safety Report 13857303 (Version 3)
Quarter: 2017Q3

REPORT INFORMATION
  Report Type: Spontaneous
  Country: GB (occurrence: GB)
  Receive Date: 20170810
  Receipt Date: 20170928
  Transmission Date: 20171127
  Serious: Yes (Other)
  Sender: FDA-Public Use
  Company Number: GB-BEH-2017082481

PATIENT

DRUGS (1)
  1. PRIVIGEN [Suspect]
     Active Substance: HUMAN IMMUNOGLOBULIN G
     Indication: LEUKAEMIA
     Route: 065

REACTIONS (4)
  - Hypertension [Unknown]
  - Tremor [Recovered/Resolved]
  - Oxygen saturation decreased [Unknown]
  - Chills [Recovered/Resolved]
